FAERS Safety Report 18104879 (Version 11)
Quarter: 2024Q1

REPORT INFORMATION
  Report Type: Report from Study
  Country: FR (occurrence: FR)
  Receive Date: 20200804
  Receipt Date: 20240304
  Transmission Date: 20240409
  Serious: Yes (Hospitalization, Other)
  Sender: FDA-Public Use
  Company Number: FR-ABBVIE-20K-056-3503757-00

PATIENT
  Age: 28 Year
  Sex: Male
  Weight: 73 kg

DRUGS (25)
  1. HUMIRA [Suspect]
     Active Substance: ADALIMUMAB
     Indication: Colitis ulcerative
     Route: 058
     Dates: start: 20170502, end: 20170613
  2. PENTASA [Concomitant]
     Active Substance: MESALAMINE
     Indication: Colitis ulcerative
     Route: 048
     Dates: start: 201406, end: 201506
  3. PENTASA [Concomitant]
     Active Substance: MESALAMINE
     Indication: Colitis ulcerative
     Route: 048
     Dates: start: 20170614, end: 201707
  4. Solupred [Concomitant]
     Indication: Colitis ulcerative
     Route: 048
     Dates: start: 20160621, end: 20161115
  5. Solupred [Concomitant]
     Indication: Colitis ulcerative
     Route: 048
     Dates: start: 20170118, end: 20170609
  6. Solupred [Concomitant]
     Indication: Colitis ulcerative
     Route: 048
     Dates: start: 20170424, end: 20170609
  7. SIMPONI [Concomitant]
     Active Substance: GOLIMUMAB
     Indication: Colitis ulcerative
     Route: 058
     Dates: start: 20170628, end: 201707
  8. PREDNISONE [Concomitant]
     Active Substance: PREDNISONE
     Indication: Colitis ulcerative
     Route: 048
     Dates: start: 201707, end: 201710
  9. PREDNISONE [Concomitant]
     Active Substance: PREDNISONE
     Indication: Colitis ulcerative
     Route: 048
     Dates: start: 201711, end: 201805
  10. PREDNISONE [Concomitant]
     Active Substance: PREDNISONE
     Indication: Colitis ulcerative
     Route: 048
     Dates: start: 201805, end: 201909
  11. IMODIUM [Concomitant]
     Active Substance: LOPERAMIDE HYDROCHLORIDE
     Indication: Colitis ulcerative
     Dosage: TIME INTERVAL: AS NECESSARY
     Route: 048
     Dates: start: 201711, end: 201808
  12. STELARA [Concomitant]
     Active Substance: USTEKINUMAB
     Indication: Colitis ulcerative
     Dosage: TIME INTERVAL: 1 TOTAL
     Route: 042
     Dates: start: 20180607, end: 20180607
  13. TOFACITINIB [Concomitant]
     Active Substance: TOFACITINIB
     Indication: Colitis ulcerative
     Dosage: DURATION: 28 DAYS
     Route: 048
     Dates: start: 20190214, end: 20190314
  14. HYDROCORTISONE [Concomitant]
     Active Substance: HYDROCORTISONE
     Indication: Colitis ulcerative
     Route: 048
     Dates: start: 20190930, end: 20191002
  15. HYDROCORTISONE [Concomitant]
     Active Substance: HYDROCORTISONE
     Indication: Colitis ulcerative
     Route: 048
     Dates: start: 20190926, end: 20190929
  16. LOPERAMIDE [Concomitant]
     Active Substance: LOPERAMIDE
     Indication: Colitis ulcerative
     Dosage: TIME INTERVAL: AS NECESSARY
     Route: 048
     Dates: start: 20191005, end: 202005
  17. MESALAMINE [Concomitant]
     Active Substance: MESALAMINE
     Indication: Colitis ulcerative
     Route: 054
     Dates: start: 20190927, end: 201910
  18. RACECADOTRIL [Concomitant]
     Active Substance: RACECADOTRIL
     Indication: Colitis ulcerative
     Route: 048
     Dates: start: 20191008
  19. URSODIOL [Concomitant]
     Active Substance: URSODIOL
     Indication: Cholangitis sclerosing
     Dosage: 500 MILLIGRAM
     Route: 048
     Dates: start: 20161025, end: 2018
  20. CALCIUM\CHOLECALCIFEROL [Concomitant]
     Active Substance: CALCIUM\CHOLECALCIFEROL
     Indication: Hypocalcaemia
     Route: 048
     Dates: start: 201805
  21. FERINJECT [Concomitant]
     Active Substance: FERRIC CARBOXYMALTOSE
     Indication: Iron deficiency
     Dosage: TIME INTERVAL: 1 TOTAL
     Route: 042
     Dates: start: 20180704, end: 20180704
  22. ALBUTEROL [Concomitant]
     Active Substance: ALBUTEROL
     Indication: Asthma
     Dosage: TIME INTERVAL: AS NECESSARY
     Dates: start: 201903
  23. BILASTINE [Concomitant]
     Active Substance: BILASTINE
     Indication: Asthma
     Route: 048
     Dates: start: 201903
  24. Calcitol D3 [Concomitant]
     Indication: Prophylaxis
     Dosage: 1 CAPSULE
     Route: 048
     Dates: start: 201805
  25. Betnesol [Concomitant]
     Indication: Colitis ulcerative
     Route: 054
     Dates: start: 20170614, end: 201707

REACTIONS (9)
  - Colitis [Recovered/Resolved with Sequelae]
  - Perineal fistula [Recovered/Resolved]
  - Colitis [Recovered/Resolved]
  - Migraine with aura [Recovered/Resolved]
  - Colitis [Recovered/Resolved]
  - Hospitalisation [Recovered/Resolved]
  - Colitis [Recovered/Resolved]
  - Graves^ disease [Recovering/Resolving]
  - Anal fistula [Recovered/Resolved]

NARRATIVE: CASE EVENT DATE: 20190926
